FAERS Safety Report 7305443-4 (Version None)
Quarter: 2011Q1

REPORT INFORMATION
  Report Type: 
  Country: None (occurrence: None)
  Receive Date: 20110222
  Receipt Date: 20110209
  Transmission Date: 20110831
  Serious: Yes (Other)
  Sender: FDA-Public Use
  Company Number: PHHY2011US10208

PATIENT
  Age: 39 Year
  Sex: Female

DRUGS (5)
  1. ESTRADIOL [Concomitant]
     Dosage: UNK
  2. STEROIDS NOS [Concomitant]
     Dosage: UNK
  3. CYCLOSPORINE [Suspect]
     Indication: IMMUNOSUPPRESSION
     Dosage: UNK
  4. CLOBETASOL PROPIONATE [Concomitant]
     Dosage: UNK
  5. CLOBETASOL PROPIONATE [Concomitant]
     Dosage: UNK

REACTIONS (6)
  - VAGINAL DISCHARGE [None]
  - DYSPAREUNIA [None]
  - TENDERNESS [None]
  - BLOOD DISORDER [None]
  - VULVOVAGINAL DISCOMFORT [None]
  - ERYTHEMA [None]
